FAERS Safety Report 4514111-3 (Version None)
Quarter: 2004Q4

REPORT INFORMATION
  Report Type: 
  Country: None (occurrence: None)
  Receive Date: 20041124
  Receipt Date: 20041119
  Transmission Date: 20050328
  Serious: Yes (Other)
  Sender: FDA-Public Use
  Company Number: K200401779

PATIENT
  Age: 35 Year
  Sex: Female
  Weight: 52 kg

DRUGS (2)
  1. NORDETTE-21 [Suspect]
     Indication: ORAL CONTRACEPTION
     Dosage: 1 TAB, QD,ORAL
     Route: 048
     Dates: start: 20020901, end: 20040820
  2. TIMONIL - SLOW RELEASE (CARBAMAZEPINE) 600MG [Suspect]
     Indication: EPILEPSY
     Dosage: 600 MG, QD, ORAL
     Route: 048

REACTIONS (5)
  - ABORTION EARLY [None]
  - DRUG EXPOSURE DURING PREGNANCY [None]
  - HAEMORRHAGE [None]
  - INTRA-UTERINE DEATH [None]
  - PREGNANCY ON ORAL CONTRACEPTIVE [None]
